FAERS Safety Report 22389104 (Version 1)
Quarter: 2023Q2

REPORT INFORMATION
  Report Type: Spontaneous
  Country: CN (occurrence: CN)
  Receive Date: 20230531
  Receipt Date: 20230531
  Transmission Date: 20230722
  Serious: Yes (Other)
  Sender: FDA-Public Use
  Company Number: CN-PFIZER INC-PV202300094866

PATIENT
  Age: 11 Year
  Sex: Female
  Weight: 31 kg

DRUGS (1)
  1. ZITHROMAX [Suspect]
     Active Substance: AZITHROMYCIN DIHYDRATE
     Indication: Mycoplasma infection
     Dosage: 0.375 G, ONCE A DAY
     Route: 048
     Dates: start: 20230516, end: 20230516

REACTIONS (10)
  - Palpitations [Recovering/Resolving]
  - Dyspnoea [Recovering/Resolving]
  - Tremor [Recovering/Resolving]
  - Dizziness [Recovering/Resolving]
  - Headache [Recovering/Resolving]
  - Pyrexia [Recovering/Resolving]
  - Cough [Recovering/Resolving]
  - Off label use [Unknown]
  - Product use issue [Unknown]
  - Intentional product use issue [Unknown]

NARRATIVE: CASE EVENT DATE: 20230516
